FAERS Safety Report 26054334 (Version 1)
Quarter: 2025Q4

REPORT INFORMATION
  Report Type: Spontaneous
  Country: EU (occurrence: EU)
  Receive Date: 20251117
  Receipt Date: 20251117
  Transmission Date: 20260118
  Serious: Yes (Hospitalization, Other)
  Sender: SANDOZ
  Company Number: EU-VERTEX PHARMACEUTICALS-2025-015194

PATIENT
  Age: 41 Year
  Sex: Male

DRUGS (13)
  1. CASPOFUNGIN [Suspect]
     Active Substance: CASPOFUNGIN
     Indication: Infective pulmonary exacerbation of cystic fibrosis
     Dosage: UNK
     Route: 065
     Dates: start: 2018
  2. CASPOFUNGIN [Suspect]
     Active Substance: CASPOFUNGIN
     Indication: Aspergillus infection
  3. CASPOFUNGIN [Suspect]
     Active Substance: CASPOFUNGIN
     Indication: Haemoptysis
  4. CASPOFUNGIN [Suspect]
     Active Substance: CASPOFUNGIN
     Indication: Scedosporium infection
  5. OLOROFIM [Suspect]
     Active Substance: OLOROFIM
     Indication: Scedosporium infection
     Dosage: UNK
     Route: 065
  6. AMPHOTERICIN B [Concomitant]
     Active Substance: AMPHOTERICIN B
     Dosage: UNK
     Route: 045
     Dates: start: 2022
  7. AMPHOTERICIN B [Concomitant]
     Active Substance: AMPHOTERICIN B
     Indication: Scedosporium infection
     Dosage: UNK, START DATE: 2020
     Route: 045
  8. IVACAFTOR\LUMACAFTOR [Concomitant]
     Active Substance: IVACAFTOR\LUMACAFTOR
     Indication: Cystic fibrosis
     Dosage: UNK
     Route: 065
  9. ELEXACAFTOR\IVACAFTOR\TEZACAFTOR [Interacting]
     Active Substance: ELEXACAFTOR\IVACAFTOR\TEZACAFTOR
     Indication: Cystic fibrosis
     Dosage: UNK, START DATE: FEB-2020
     Route: 048
  10. VORICONAZOLE [Interacting]
     Active Substance: VORICONAZOLE
     Indication: Haemoptysis
     Dosage: UNK
     Route: 065
     Dates: start: 2022
  11. VORICONAZOLE [Interacting]
     Active Substance: VORICONAZOLE
     Indication: Infective pulmonary exacerbation of cystic fibrosis
     Dosage: UNK
     Route: 065
     Dates: start: 2018
  12. VORICONAZOLE [Interacting]
     Active Substance: VORICONAZOLE
     Indication: Aspergillus infection
  13. VORICONAZOLE [Interacting]
     Active Substance: VORICONAZOLE
     Indication: Scedosporium infection

REACTIONS (10)
  - Scedosporium infection [Recovered/Resolved]
  - Photosensitivity reaction [Recovered/Resolved]
  - Drug level below therapeutic [Recovered/Resolved]
  - Drug interaction [Recovered/Resolved]
  - Aspergilloma [Unknown]
  - Infective pulmonary exacerbation of cystic fibrosis [Unknown]
  - Haemoptysis [Recovered/Resolved]
  - Eye disorder [Unknown]
  - Loss of therapeutic response [Unknown]
  - Off label use [Unknown]
